FAERS Safety Report 8355393-X (Version None)
Quarter: 2012Q2

REPORT INFORMATION
  Report Type: 
  Country: None (occurrence: None)
  Receive Date: 20120511
  Receipt Date: 20120427
  Transmission Date: 20120825
  Serious: Yes (Hospitalization)
  Sender: FDA-Public Use
  Company Number: DE-ROCHE-801768

PATIENT
  Age: 69 Year
  Sex: Male
  Weight: 89 kg

DRUGS (12)
  1. TELMISARTAN [Concomitant]
     Dosage: TOTAL DAILY DOSE: 80/12.5 MG
  2. METFORMIN HCL [Concomitant]
  3. CHOLECALCIFEROL [Concomitant]
  4. FOLSAURE [Concomitant]
  5. PREDNISOLONE [Concomitant]
  6. XYLOCAINE [Concomitant]
     Dates: start: 20110624
  7. SIMVASTATIN [Concomitant]
  8. METFORMIN HCL [Concomitant]
  9. PANTOPRAZOLE [Concomitant]
  10. ASPIRIN [Concomitant]
  11. ACTEMRA [Suspect]
     Indication: RHEUMATOID ARTHRITIS
     Dosage: TEMPORARILY INTERRUPTED; DATE OF LAST DOSE PRIOR TO SAE: 04 AUGUST 2011
     Route: 042
     Dates: start: 20110707, end: 20110804
  12. MIDAZOLAM [Concomitant]
     Dates: start: 20110624

REACTIONS (10)
  - ULTRASOUND ABDOMEN ABNORMAL [None]
  - THROMBOCYTOPENIA [None]
  - BLOOD GLUCOSE INCREASED [None]
  - MEAN CELL VOLUME INCREASED [None]
  - LIVER DISORDER [None]
  - ASPARTATE AMINOTRANSFERASE INCREASED [None]
  - LIVER FUNCTION TEST ABNORMAL [None]
  - GAMMA-GLUTAMYLTRANSFERASE INCREASED [None]
  - HAEMATURIA [None]
  - ALANINE AMINOTRANSFERASE INCREASED [None]
